FAERS Safety Report 25389729 (Version 1)
Quarter: 2025Q2

REPORT INFORMATION
  Report Type: Spontaneous
  Country: IN (occurrence: IN)
  Receive Date: 20250603
  Receipt Date: 20250603
  Transmission Date: 20250717
  Serious: Yes (Other)
  Sender: SANOFI AVENTIS
  Company Number: IN-SANOFI-02512013

PATIENT
  Age: 77 Year
  Sex: Male

DRUGS (4)
  1. APIDRA [Suspect]
     Active Substance: INSULIN GLULISINE
     Indication: Product used for unknown indication
     Dosage: 14 IU, TID
     Route: 058
     Dates: start: 20230507
  2. APIDRA [Suspect]
     Active Substance: INSULIN GLULISINE
     Dosage: 14-12-5, TID
     Dates: start: 2024
  3. INSULIN GLARGINE [Concomitant]
     Active Substance: INSULIN GLARGINE
  4. BECELAC [Concomitant]
     Dosage: 0-0-1, QD

REACTIONS (4)
  - Cataract [Unknown]
  - Blood glucose fluctuation [Unknown]
  - Incorrect dose administered by device [Unknown]
  - Device operational issue [Unknown]

NARRATIVE: CASE EVENT DATE: 20250101
